FAERS Safety Report 7438560-9 (Version None)
Quarter: 2011Q2

REPORT INFORMATION
  Report Type: 
  Country: None (occurrence: None)
  Receive Date: 20110426
  Receipt Date: 20110420
  Transmission Date: 20111010
  Serious: Yes (Other)
  Sender: FDA-Public Use
  Company Number: IE-AMGEN-IRLSP2011020835

PATIENT
  Sex: Female

DRUGS (10)
  1. COVERSYL                           /00790701/ [Concomitant]
  2. NEULASTA [Suspect]
     Indication: CHEMOTHERAPY
     Dosage: 6 MG, Q3WK
     Route: 058
     Dates: start: 20101012
  3. LIPOSTAT [Concomitant]
  4. MOTILIUM                           /00498201/ [Concomitant]
  5. PLENDIL [Concomitant]
  6. ENEMOL [Concomitant]
  7. ASPIRIN [Concomitant]
  8. DEXAMETHASONE [Concomitant]
  9. ZOFRON                             /00955301/ [Concomitant]
  10. ANTINEOPLASTIC AGENTS [Concomitant]

REACTIONS (1)
  - PULMONARY THROMBOSIS [None]
